FAERS Safety Report 7540146-2 (Version None)
Quarter: 2011Q2

REPORT INFORMATION
  Report Type: 
  Country: None (occurrence: None)
  Receive Date: 20110610
  Receipt Date: 20110603
  Transmission Date: 20111010
  Serious: Yes (Hospitalization)
  Sender: FDA-Public Use
  Company Number: US-B.I. PHARMACEUTICALS,INC./RIDGEFIELD-2011-BP-10148BP

PATIENT
  Sex: Female

DRUGS (10)
  1. PRADAXA [Suspect]
     Indication: ATRIAL FLUTTER
     Dosage: 300 MG
     Dates: start: 20110324, end: 20110328
  2. MICARDIS [Concomitant]
     Dosage: 80 MG
  3. VITAMIN D [Concomitant]
     Dosage: 1000 U
  4. OMEPRAZOLE [Concomitant]
     Dosage: 20 MG
  5. AMLODIPINE [Concomitant]
     Dosage: 5 MG
  6. ATENOLOL [Concomitant]
     Dosage: 100 MG
  7. MELATONIN [Concomitant]
     Dosage: 5 MG
  8. TRICOR [Concomitant]
     Dosage: 54 MG
  9. SYNTHROID [Concomitant]
     Dosage: 100 MCG
  10. AMIODARONE HCL [Concomitant]
     Dosage: 400 MG

REACTIONS (2)
  - HAEMOPTYSIS [None]
  - PULMONARY HAEMORRHAGE [None]
